FAERS Safety Report 5660749-X (Version None)
Quarter: 2008Q1

REPORT INFORMATION
  Report Type: 
  Country: None (occurrence: None)
  Receive Date: 20080311
  Receipt Date: 20080227
  Transmission Date: 20080703
  Serious: Yes (Hospitalization, Other)
  Sender: FDA-Public Use
  Company Number: CA-ELI_LILLY_AND_COMPANY-CA200711004727

PATIENT
  Sex: Male

DRUGS (9)
  1. CIALIS [Suspect]
     Indication: ERECTILE DYSFUNCTION
     Dosage: 20 MG, UNK
     Route: 048
     Dates: end: 20050101
  2. CIALIS [Suspect]
     Dosage: 20 MG, UNK
     Route: 048
     Dates: end: 20070701
  3. COUMADIN [Concomitant]
  4. LIPITOR [Concomitant]
  5. METFORMIN HCL [Concomitant]
  6. MEVACOR [Concomitant]
  7. PANTOLOC                           /01263201/ [Concomitant]
  8. SYNTHROID [Concomitant]
  9. OXYBUTYNIN CHLORIDE [Concomitant]

REACTIONS (13)
  - AORTIC VALVE REPLACEMENT [None]
  - ATRIAL FIBRILLATION [None]
  - CARDIAC DISORDER [None]
  - CEREBRAL DISORDER [None]
  - CEREBRAL ISCHAEMIA [None]
  - CEREBROVASCULAR ACCIDENT [None]
  - DERMATITIS [None]
  - DIABETES MELLITUS [None]
  - EMBOLISM [None]
  - HERNIA [None]
  - HYPERTENSION [None]
  - HYPOTHYROIDISM [None]
  - KNEE ARTHROPLASTY [None]
